FAERS Safety Report 5364865-1 (Version None)
Quarter: 2007Q2

REPORT INFORMATION
  Report Type: 
  Country: None (occurrence: None)
  Receive Date: 20070530
  Receipt Date: 20070125
  Transmission Date: 20071010
  Serious: No
  Sender: FDA-Public Use
  Company Number: 2006PV012111

PATIENT
  Age: 65 Year
  Sex: Male
  Weight: 122.4712 kg

DRUGS (6)
  1. BYETTA [Suspect]
     Indication: DIABETES MELLITUS NON-INSULIN-DEPENDENT
     Dosage: 5 MCG; BID; SC
     Route: 058
     Dates: start: 20060407
  2. BYETTA [Suspect]
  3. BYETTA [Suspect]
  4. AMARYL [Concomitant]
  5. GLUCOPHAGE [Concomitant]
  6. LANTUS [Concomitant]

REACTIONS (13)
  - ABDOMINAL DISTENSION [None]
  - ASTHENIA [None]
  - BLOOD GLUCOSE DECREASED [None]
  - BLOOD GLUCOSE INCREASED [None]
  - BLOOD TEST ABNORMAL [None]
  - CHILLS [None]
  - CONSTIPATION [None]
  - DECREASED APPETITE [None]
  - DIZZINESS [None]
  - DRUG EFFECT DECREASED [None]
  - HUNGER [None]
  - HYPERSOMNIA [None]
  - WEIGHT DECREASED [None]
